FAERS Safety Report 8435772-2 (Version None)
Quarter: 2012Q2

REPORT INFORMATION
  Report Type: 
  Country: None (occurrence: None)
  Receive Date: 20120614
  Receipt Date: 20120606
  Transmission Date: 20120825
  Serious: Yes (Life-Threatening, Hospitalization, Other)
  Sender: FDA-Public Use
  Company Number: DE-ELI_LILLY_AND_COMPANY-DE201206001698

PATIENT
  Age: 75 Year
  Sex: Female

DRUGS (5)
  1. CORTISONE ACETATE [Concomitant]
     Dosage: 5 MG, UNK
  2. TRAMADOL HCL [Concomitant]
  3. TILIDIN [Concomitant]
  4. CALCIUM + VITAMIN D [Concomitant]
  5. FORTEO [Suspect]
     Indication: OSTEOPOROSIS
     Dosage: UNK, QD
     Route: 058
     Dates: start: 20100708

REACTIONS (4)
  - GASTROINTESTINAL INFECTION [None]
  - LOCALISED INFECTION [None]
  - GASTRIC HAEMORRHAGE [None]
  - FOOT OPERATION [None]
